FAERS Safety Report 12076644 (Version 1)
Quarter: 2016Q1

REPORT INFORMATION
  Report Type: Spontaneous
  Country: GB (occurrence: GB)
  Receive Date: 20160215
  Receipt Date: 20160215
  Transmission Date: 20160526
  Serious: Yes (Life-Threatening)
  Sender: FDA-Public Use
  Company Number: GB-009507513-1602GBR006659

PATIENT
  Age: 28 Year
  Sex: Female
  Weight: 52 kg

DRUGS (1)
  1. NEXPLANON [Suspect]
     Active Substance: ETONOGESTREL
     Indication: CONTRACEPTIVE IMPLANT
     Dosage: 68G
     Route: 059
     Dates: start: 20130607, end: 20160204

REACTIONS (1)
  - Ectopic pregnancy with contraceptive device [Recovered/Resolved with Sequelae]

NARRATIVE: CASE EVENT DATE: 20151215
